FAERS Safety Report 4620135-8 (Version None)
Quarter: 2005Q1

REPORT INFORMATION
  Report Type: 
  Country: None (occurrence: None)
  Receive Date: 20050324
  Receipt Date: 20050314
  Transmission Date: 20050727
  Serious: Yes (Hospitalization)
  Sender: FDA-Public Use
  Company Number: 2004094424

PATIENT
  Age: 42 Year
  Sex: Male
  Weight: 70 kg

DRUGS (4)
  1. DOSTINEX [Suspect]
     Indication: PROLACTINOMA
     Dosage: SEE IMAGE
     Route: 048
     Dates: start: 20041029, end: 20041029
  2. DOSTINEX [Suspect]
     Indication: PROLACTINOMA
     Dosage: SEE IMAGE
     Route: 048
     Dates: start: 20041101, end: 20041101
  3. DOSTINEX [Suspect]
     Indication: PROLACTINOMA
     Dosage: SEE IMAGE
     Route: 048
     Dates: start: 20041103, end: 20041103
  4. DOSTINEX [Suspect]
     Indication: PROLACTINOMA
     Dosage: SEE IMAGE
     Route: 048
     Dates: start: 20041105, end: 20041105

REACTIONS (2)
  - DELIRIUM [None]
  - MEDICATION ERROR [None]
